FAERS Safety Report 25985020 (Version 1)
Quarter: 2025Q4

REPORT INFORMATION
  Report Type: Spontaneous
  Country: US (occurrence: US)
  Receive Date: 20251031
  Receipt Date: 20251031
  Transmission Date: 20260117
  Serious: Yes (Death, Other)
  Sender: JOHNSON AND JOHNSON
  Company Number: US-JNJFOC-20251033753

PATIENT
  Age: 4 Decade
  Sex: Female

DRUGS (1)
  1. OPSUMIT [Suspect]
     Active Substance: MACITENTAN
     Indication: Pulmonary arterial hypertension
     Route: 048

REACTIONS (5)
  - Death [Fatal]
  - Renal failure [Unknown]
  - Cerebrovascular accident [Unknown]
  - Ascites [Unknown]
  - Exposure during pregnancy [Unknown]
